FAERS Safety Report 9282996 (Version 2)
Quarter: 2014Q3

REPORT INFORMATION
  Report Type: Spontaneous
  Country: US (occurrence: US)
  Receive Date: 20130510
  Receipt Date: 20140812
  Transmission Date: 20150326
  Serious: Yes (Hospitalization, Other)
  Sender: FDA-Public Use
  Company Number: US-BAYER-2013-058078

PATIENT
  Sex: Female
  Weight: 173.7 kg

DRUGS (7)
  1. PROPANOLOL [Concomitant]
     Active Substance: PROPRANOLOL HYDROCHLORIDE
     Indication: MIGRAINE
     Dosage: 1 DF, QD
  2. WOMEN^S MULTI [Concomitant]
     Indication: SUPPLEMENTATION THERAPY
     Dosage: 1 DF, QD
     Dates: start: 200712
  3. TYLENOL COLD MULTI-SYMPTOM SEVERE [Concomitant]
     Active Substance: ACETAMINOPHEN\DEXTROMETHORPHAN HYDROBROMIDE\GUAIFENESIN\PHENYLEPHRINE HYDROCHLORIDE
     Indication: PAIN
  4. LEVOTHYROXIN [Concomitant]
     Active Substance: LEVOTHYROXINE
     Indication: HYPOTHYROIDISM
     Dosage: 25 MG, QD
  5. YAZ [Suspect]
     Active Substance: DROSPIRENONE\ETHINYL ESTRADIOL
     Dosage: UNK
     Dates: start: 200710, end: 200712
  6. HYDROCHLOROTHIAZIDE W/ZOFENOPRIL CALCIUM [Concomitant]
  7. TRAMADOL [Concomitant]
     Active Substance: TRAMADOL

REACTIONS (9)
  - Pulmonary embolism [None]
  - Injury [None]
  - Abdominal pain [None]
  - Pain [None]
  - Deep vein thrombosis [None]
  - Emotional distress [None]
  - Anxiety [None]
  - Chest pain [None]
  - General physical health deterioration [None]
